FAERS Safety Report 25856754 (Version 1)
Quarter: 2025Q3

REPORT INFORMATION
  Report Type: Spontaneous
  Country: CN (occurrence: CN)
  Receive Date: 20250929
  Receipt Date: 20250929
  Transmission Date: 20251021
  Serious: Yes (Hospitalization, Other)
  Sender: BIO-THERA SOLUTIONS, LTD
  Company Number: CN-BAT-2025BAT001028

PATIENT
  Age: 61 Year
  Sex: Male
  Weight: 64.00 kg

DRUGS (4)
  1. BEVACIZUMAB [Suspect]
     Active Substance: BEVACIZUMAB
     Indication: Lung neoplasm malignant
     Dosage: 400.00 MG, ONLY ONCE
     Route: 041
     Dates: start: 20250822, end: 20250822
  2. SINTILIMAB [Suspect]
     Active Substance: SINTILIMAB
     Indication: Lung neoplasm malignant
     Dosage: 200.00 MG, ONLY ONCE
     Route: 041
     Dates: start: 20250822, end: 20250822
  3. SODIUM CHLORIDE [Concomitant]
     Active Substance: SODIUM CHLORIDE
     Indication: Vehicle solution use
     Dosage: 100.00 ML, ONLY ONCE
     Route: 041
     Dates: start: 20250822, end: 20250822
  4. SODIUM CHLORIDE [Concomitant]
     Active Substance: SODIUM CHLORIDE
     Dosage: 100.00 ML, ONLY ONCE
     Route: 041
     Dates: start: 20250822, end: 20250822

REACTIONS (1)
  - Hepatic function abnormal [Recovering/Resolving]

NARRATIVE: CASE EVENT DATE: 20250915
